FAERS Safety Report 9370137 (Version 5)
Quarter: 2014Q4

REPORT INFORMATION
  Report Type: Spontaneous
  Country: US (occurrence: US)
  Receive Date: 20130626
  Receipt Date: 20141027
  Transmission Date: 20150529
  Serious: Yes (Hospitalization, Disabling, Other)
  Sender: FDA-Public Use
  Company Number: US-009507513-1306USA008252

PATIENT
  Sex: Female
  Weight: 68.48 kg

DRUGS (7)
  1. FOSAMAX [Suspect]
     Active Substance: ALENDRONATE SODIUM
     Dosage: 70 MG, QW
     Route: 048
     Dates: start: 20001020, end: 20001231
  2. ACTONEL [Suspect]
     Active Substance: RISEDRONATE SODIUM
     Indication: OSTEOPOROSIS
     Dosage: 35 MG, UNK
     Route: 048
     Dates: start: 20041231, end: 20051115
  3. FOSAMAX [Suspect]
     Active Substance: ALENDRONATE SODIUM
     Indication: OSTEOPOROSIS
     Dosage: 10 MG, UNK
     Route: 048
     Dates: start: 19981204, end: 20001020
  4. ALENDRONATE SODIUM. [Suspect]
     Active Substance: ALENDRONATE SODIUM
     Indication: OSTEOPOROSIS
     Dosage: 70 MG, UNK
     Route: 048
     Dates: start: 20080612, end: 20090831
  5. RECLAST [Suspect]
     Active Substance: ZOLEDRONIC ACID
     Indication: OSTEOPOROSIS
     Dosage: 4 MG, ONE DOSE ONLY
     Route: 042
     Dates: start: 20090312
  6. CALCIUM (UNSPECIFIED) [Concomitant]
     Active Substance: CALCIUM
     Dosage: 1500 MG, QD
     Dates: start: 1987
  7. VITAMINS (UNSPECIFIED) [Concomitant]
     Active Substance: VITAMINS
     Dosage: 2000 IU, QD
     Dates: start: 1987

REACTIONS (19)
  - Intramedullary rod insertion [Unknown]
  - Low turnover osteopathy [Not Recovered/Not Resolved]
  - Asthma [Unknown]
  - Device dislocation [Unknown]
  - Enchondroma [Unknown]
  - Osteopenia [Unknown]
  - Femur fracture [Recovered/Resolved]
  - Foot fracture [Unknown]
  - Oophorectomy [Unknown]
  - Device failure [Unknown]
  - Pain in extremity [Unknown]
  - Medical device removal [Unknown]
  - Sensation of foreign body [Unknown]
  - Tonsillectomy [Unknown]
  - Hysterectomy [Unknown]
  - Nausea [Unknown]
  - Nasal discomfort [Unknown]
  - Haemorrhoid operation [Unknown]
  - Drug ineffective [Unknown]

NARRATIVE: CASE EVENT DATE: 2008
